FAERS Safety Report 5627626-1 (Version None)
Quarter: 2008Q1

REPORT INFORMATION
  Report Type: 
  Country: None (occurrence: None)
  Receive Date: 20080214
  Receipt Date: 20080214
  Transmission Date: 20080703
  Serious: No
  Sender: FDA-Public Use
  Company Number: None

PATIENT
  Age: 55 Year
  Sex: Male
  Weight: 90.7194 kg

DRUGS (1)
  1. GADOLINIUM UNKNOWN UNKNOWN [Suspect]
     Indication: NUCLEAR MAGNETIC RESONANCE IMAGING
     Dosage: IV
     Route: 042
     Dates: start: 20051101, end: 20070701

REACTIONS (1)
  - NEPHROGENIC SYSTEMIC FIBROSIS [None]
